FAERS Safety Report 18841524 (Version 1)
Quarter: 2021Q1

REPORT INFORMATION
  Report Type: Spontaneous
  Country: US (occurrence: US)
  Receive Date: 20210203
  Receipt Date: 20210203
  Transmission Date: 20210419
  Serious: Yes (Other)
  Sender: FDA-Public Use
  Company Number: US-SA-2021SA031515

PATIENT
  Age: 61 Year
  Sex: Female

DRUGS (3)
  1. H.P. ACTHAR [Suspect]
     Active Substance: CORTICOTROPIN
  2. KEVZARA [Suspect]
     Active Substance: SARILUMAB
     Indication: RHEUMATOID NODULE
  3. KEVZARA [Suspect]
     Active Substance: SARILUMAB
     Indication: RHEUMATOID ARTHRITIS
     Dosage: 200 MG, QOW
     Route: 058
     Dates: start: 201710

REACTIONS (1)
  - Knee arthroplasty [Unknown]
